FAERS Safety Report 9675857 (Version 1)
Quarter: 2013Q4

REPORT INFORMATION
  Report Type: Spontaneous
  Country: US (occurrence: None)
  Receive Date: 20131105
  Receipt Date: 20131105
  Transmission Date: 20140711
  Serious: Yes (Hospitalization)
  Sender: FDA-Public Use
  Company Number: 2013US002546

PATIENT
  Age: 59 Year
  Sex: Female
  Weight: 84 kg

DRUGS (10)
  1. ICLUSIG (PONATINIB) TABLET, 15MG [Suspect]
     Indication: ACUTE LYMPHOCYTIC LEUKAEMIA
     Dates: start: 20130117
  2. AMLODIPINE (AMLODIPINE) [Concomitant]
  3. CIPRO (CIPROFLOXACIN HYDROCHLORIDE) [Concomitant]
  4. PEPCID (FAMOTIDINE) [Concomitant]
  5. LISINOPRIL (LISINOPRIL) [Concomitant]
  6. SENOKOT-S (DOCUSATE SODIUM, SENNA ALEXANDRINA) [Concomitant]
  7. ZOFRAN (ONDANSETRON HYDROCHLORIDE) [Concomitant]
  8. RITUXIMAB (RITUXIMAB) [Concomitant]
  9. METHOTREXATE (METHOTREXATE) [Concomitant]
  10. MERCAPTOPURINE (MERCAPTOPURINE) [Concomitant]

REACTIONS (8)
  - Gait disturbance [None]
  - Mobility decreased [None]
  - Muscular weakness [None]
  - Pain in extremity [None]
  - Disease progression [None]
  - Febrile neutropenia [None]
  - Urinary tract infection [None]
  - Back pain [None]
